FAERS Safety Report 11195083 (Version 2)
Quarter: 2015Q3

REPORT INFORMATION
  Report Type: Spontaneous
  Country: IE (occurrence: IE)
  Receive Date: 20150617
  Receipt Date: 20150709
  Transmission Date: 20151125
  Serious: Yes (Other)
  Sender: FDA-Public Use
  Company Number: IE-AUROBINDO-AUR-APL-2015-05153

PATIENT

DRUGS (2)
  1. ALENDRONIC ACID [Suspect]
     Active Substance: ALENDRONIC ACID
     Indication: OSTEOPOROSIS
     Dosage: 70 MG, EVERY WEEK
     Route: 065
     Dates: start: 200704, end: 200902
  2. ZOLEDRONIC ACID [Suspect]
     Active Substance: ZOLEDRONIC ACID
     Indication: OSTEOPOROSIS
     Dosage: 4 MG, ANNUALLY
     Route: 042
     Dates: start: 2010

REACTIONS (11)
  - Joint ankylosis [Recovering/Resolving]
  - Jaw fracture [Recovering/Resolving]
  - Joint swelling [Recovering/Resolving]
  - Dyskinesia [Recovering/Resolving]
  - Arteriosclerosis [Recovering/Resolving]
  - Arthropathy [Recovering/Resolving]
  - Osteopenia [Recovering/Resolving]
  - Pain in jaw [Recovering/Resolving]
  - Joint dislocation [Recovering/Resolving]
  - Disease progression [Recovering/Resolving]
  - Temporomandibular joint syndrome [Recovering/Resolving]
